FAERS Safety Report 6756682-2 (Version None)
Quarter: 2010Q2

REPORT INFORMATION
  Report Type: 
  Country: None (occurrence: None)
  Receive Date: 20100604
  Receipt Date: 20100524
  Transmission Date: 20101027
  Serious: Yes (Other)
  Sender: FDA-Public Use
  Company Number: US-WATSON-2010-07111

PATIENT

DRUGS (1)
  1. TRIAMCINOLONE DIACETATE [Suspect]
     Indication: ORAL SURGERY
     Dosage: 1 ML, SINGLE
     Route: 050

REACTIONS (3)
  - IRITIS [None]
  - MYDRIASIS [None]
  - RETINAL ARTERY OCCLUSION [None]
